FAERS Safety Report 5105551-2 (Version None)
Quarter: 2006Q3

REPORT INFORMATION
  Report Type: 
  Country: None (occurrence: None)
  Receive Date: 20060915
  Receipt Date: 20060903
  Transmission Date: 20061208
  Serious: Yes (Hospitalization)
  Sender: FDA-Public Use
  Company Number: US-AMGEN-STX192321

PATIENT
  Sex: Female

DRUGS (2)
  1. ENBREL [Suspect]
     Indication: RHEUMATOID ARTHRITIS
     Route: 058
     Dates: start: 20060717
  2. METHOTREXATE [Concomitant]
     Dates: start: 20060401

REACTIONS (3)
  - ANKLE OPERATION [None]
  - LIGAMENT OPERATION [None]
  - TENDON OPERATION [None]
